FAERS Safety Report 14671720 (Version 1)
Quarter: 2018Q1

REPORT INFORMATION
  Report Type: Spontaneous
  Country: US (occurrence: US)
  Receive Date: 20180323
  Receipt Date: 20180323
  Transmission Date: 20180509
  Serious: Yes (Other)
  Sender: FDA-Public Use
  Company Number: US-BRISTOL-MYERS SQUIBB COMPANY-BMS-2018-023998

PATIENT

DRUGS (2)
  1. KENALOG-40 [Suspect]
     Active Substance: TRIAMCINOLONE ACETONIDE
     Indication: INTRAOCULAR LENS IMPLANT
     Route: 065
  2. KENALOG-40 [Suspect]
     Active Substance: TRIAMCINOLONE ACETONIDE
     Indication: CATARACT OPERATION
     Dosage: 40 MG/ML, QD
     Route: 065

REACTIONS (2)
  - Product use in unapproved indication [Unknown]
  - Endophthalmitis [Unknown]
